FAERS Safety Report 24543507 (Version 1)
Quarter: 2024Q4

REPORT INFORMATION
  Report Type: Spontaneous
  Country: SI (occurrence: SI)
  Receive Date: 20241024
  Receipt Date: 20241024
  Transmission Date: 20250114
  Serious: Yes (Other)
  Sender: AMGEN
  Company Number: None

PATIENT
  Age: 47 Year
  Sex: Male

DRUGS (2)
  1. KYPROLIS [Suspect]
     Active Substance: CARFILZOMIB
     Indication: Plasmacytoma
     Dosage: STRANGHT: 60 MGDOSE: 70MG/M2 DATES 13 AND 14 JUNE; 20 AND 21 JUNE, 27 JUNE AND 28 JUNE 2024
     Route: 040
     Dates: start: 20240613, end: 20240801
  2. DARZALEX [Concomitant]
     Active Substance: DARATUMUMAB
     Indication: Plasmacytoma
     Dosage: 1800 MILLIGRAM
     Route: 058

REACTIONS (2)
  - Pancytopenia [Recovered/Resolved]
  - Ageusia [Recovered/Resolved]
